FAERS Safety Report 7810078-0 (Version None)
Quarter: 2011Q4

REPORT INFORMATION
  Report Type: 
  Country: None (occurrence: None)
  Receive Date: 20111012
  Receipt Date: 20100312
  Transmission Date: 20120403
  Serious: Yes (Other)
  Sender: FDA-Public Use
  Company Number: US-UCBSA-002181

PATIENT
  Age: 34 Year
  Sex: Female
  Weight: 76 kg

DRUGS (6)
  1. VALPROIC ACID [Concomitant]
     Indication: EPILEPSY
     Route: 048
     Dates: start: 20060101, end: 20090828
  2. VIMPAT [Suspect]
     Indication: EPILEPSY
     Route: 048
     Dates: start: 20090807, end: 20091013
  3. EPITOL [Concomitant]
     Indication: EPILEPSY
     Route: 048
     Dates: start: 20040101, end: 20090827
  4. EPITOL [Concomitant]
     Route: 048
     Dates: start: 20090911, end: 20090924
  5. EPITOL [Concomitant]
     Route: 048
     Dates: start: 20090828, end: 20090910
  6. EPITOL [Concomitant]
     Route: 048
     Dates: start: 20090925, end: 20091008

REACTIONS (2)
  - ABORTION SPONTANEOUS [None]
  - PREGNANCY [None]
